FAERS Safety Report 6931072-8 (Version None)
Quarter: 2010Q3

REPORT INFORMATION
  Report Type: 
  Country: None (occurrence: None)
  Receive Date: 20100818
  Receipt Date: 20100818
  Transmission Date: 20110219
  Serious: No
  Sender: FDA-Public Use
  Company Number: None

PATIENT
  Age: 30 Year
  Sex: Female

DRUGS (1)
  1. FLONASE [Suspect]
     Indication: SINUSITIS
     Dosage: 100MCG IN EACH NOSTRIL ONCE DAILY NASAL
     Route: 045
     Dates: start: 20100414, end: 20100428

REACTIONS (2)
  - DRUG INEFFECTIVE [None]
  - PRODUCT SUBSTITUTION ISSUE [None]
